FAERS Safety Report 17296580 (Version 3)
Quarter: 2020Q3

REPORT INFORMATION
  Report Type: Report from Study
  Country: US (occurrence: US)
  Receive Date: 20200122
  Receipt Date: 20200912
  Transmission Date: 20201102
  Serious: Yes (Other)
  Sender: FDA-Public Use
  Company Number: NVSC2020US011076

PATIENT
  Sex: Female

DRUGS (1)
  1. ENTRESTO [Suspect]
     Active Substance: SACUBITRIL\VALSARTAN
     Indication: PRODUCT USED FOR UNKNOWN INDICATION
     Dosage: 50 MG (24/26 MG), BID
     Route: 048

REACTIONS (8)
  - Cardiac failure congestive [Unknown]
  - Arrhythmia [Unknown]
  - Irritability [Unknown]
  - Chest pain [Unknown]
  - Pain in extremity [Unknown]
  - Thinking abnormal [Unknown]
  - Dizziness [Unknown]
  - Product dose omission issue [Unknown]
